FAERS Safety Report 6984551-1 (Version None)
Quarter: 2010Q3

REPORT INFORMATION
  Report Type: 
  Country: None (occurrence: None)
  Receive Date: 20100915
  Receipt Date: 20100907
  Transmission Date: 20110219
  Serious: Yes (Other)
  Sender: FDA-Public Use
  Company Number: CL-PFIZER INC-2010114820

PATIENT
  Sex: Male

DRUGS (4)
  1. DETRUSITOL [Suspect]
     Indication: PROSTATIC DISORDER
     Dosage: 1 DF, 2X/DAY
     Route: 048
  2. ENALAPRIL [Concomitant]
  3. ASPIRIN [Concomitant]
  4. ACETAMINOPHEN [Concomitant]

REACTIONS (2)
  - ASPHYXIA [None]
  - PALPITATIONS [None]
